FAERS Safety Report 4844893-2 (Version None)
Quarter: 2005Q4

REPORT INFORMATION
  Report Type: 
  Country: None (occurrence: None)
  Receive Date: 20051201
  Receipt Date: 20051201
  Transmission Date: 20060501
  Serious: Yes (Hospitalization)
  Sender: FDA-Public Use
  Company Number: None

PATIENT
  Sex: Female
  Weight: 63 kg

DRUGS (5)
  1. QUETIAPINE FUMARATE [Suspect]
     Indication: BIPOLAR DISORDER
     Dosage: 150 MG AT BEDTIME PO
     Route: 048
  2. QUETIAPINE FUMARATE [Suspect]
  3. LAMOTRIGINE [Concomitant]
  4. SERTRALINE HCL [Concomitant]
  5. VENLAFAXINE HCL [Concomitant]

REACTIONS (5)
  - DEPRESSION [None]
  - INTENTIONAL OVERDOSE [None]
  - INTENTIONAL SELF-INJURY [None]
  - STRESS [None]
  - SUICIDE ATTEMPT [None]
